FAERS Safety Report 7339218-7 (Version None)
Quarter: 2011Q1

REPORT INFORMATION
  Report Type: 
  Country: None (occurrence: None)
  Receive Date: 20110308
  Receipt Date: 20110301
  Transmission Date: 20110831
  Serious: Yes (Other)
  Sender: FDA-Public Use
  Company Number: GB-US-EMD SERONO, INC.-7018225

PATIENT
  Sex: Female

DRUGS (4)
  1. REBIF [Suspect]
     Indication: PRODUCT USED FOR UNKNOWN INDICATION
     Dates: start: 20090326
  2. REBIF [Suspect]
     Dates: start: 20090301
  3. REBIF [Suspect]
     Dates: start: 20100818
  4. REBIF [Suspect]
     Dates: start: 20090427

REACTIONS (14)
  - GASTRIC ULCER [None]
  - OPTIC NEURITIS [None]
  - INTESTINAL MASS [None]
  - GAIT DISTURBANCE [None]
  - DRUG INEFFECTIVE [None]
  - DUODENAL ULCER [None]
  - DIARRHOEA [None]
  - RECTAL HAEMORRHAGE [None]
  - SINUSITIS [None]
  - ARTHRALGIA [None]
  - VOMITING [None]
  - STOMACH MASS [None]
  - LACRIMATION INCREASED [None]
  - TEMPOROMANDIBULAR JOINT SYNDROME [None]
